FAERS Safety Report 22105302 (Version 2)
Quarter: 2023Q1

REPORT INFORMATION
  Report Type: Report from Study
  Country: GB (occurrence: GB)
  Receive Date: 20230317
  Receipt Date: 20230326
  Transmission Date: 20230417
  Serious: Yes (Hospitalization, Other)
  Sender: FDA-Public Use
  Company Number: GB-CELLTRION INC.-2023GB002394

PATIENT

DRUGS (28)
  1. RITUXIMAB [Suspect]
     Active Substance: RITUXIMAB
     Indication: Diffuse large B-cell lymphoma
     Dosage: Q4WEEKS, 1Q2W, (ADDITIONAL INFORMATION ON DRUG: DOSE DELAYED)
     Route: 042
     Dates: start: 20230104, end: 20230104
  2. RITUXIMAB [Suspect]
     Active Substance: RITUXIMAB
     Indication: Diffuse large B-cell lymphoma stage III
     Dosage: 1Q2W (ADDITIONAL INFORMATION: REGIMEN 1)
     Route: 042
     Dates: start: 20230104, end: 20230104
  3. GEMCITABINE [Suspect]
     Active Substance: GEMCITABINE
     Indication: Diffuse large B-cell lymphoma
     Dosage: EVERY 4 WEEKS, 1Q2W, (ADDITIONAL INFORMATION ON DRUG: DOSE DELAYED)
     Route: 042
     Dates: start: 20230104, end: 20230104
  4. GEMCITABINE [Suspect]
     Active Substance: GEMCITABINE
     Indication: Diffuse large B-cell lymphoma stage III
     Dosage: 1Q2W (ADDITIONAL INFORMATION: REGIMEN 1)
     Route: 042
     Dates: start: 20230104, end: 20230104
  5. OXALIPLATIN [Suspect]
     Active Substance: OXALIPLATIN
     Indication: Diffuse large B-cell lymphoma
     Dosage: Q4WEEKS, 1Q2W, (ADDITIONAL INFORMATION ON DRUG: DOSE DELAYED)
     Route: 042
     Dates: start: 20230104, end: 20230104
  6. OXALIPLATIN [Suspect]
     Active Substance: OXALIPLATIN
     Indication: Diffuse large B-cell lymphoma stage III
     Dosage: 1Q2W
     Route: 042
     Dates: start: 20230104, end: 20230104
  7. ACYCLOVIR [Concomitant]
     Active Substance: ACYCLOVIR
     Dosage: UNK (ADDITIONAL INFORMATION: ONGOING)
     Dates: start: 20220831
  8. ALLOPURINOL [Concomitant]
     Active Substance: ALLOPURINOL
     Dosage: UNK (ADDITIONAL INFORMATION: ONGOING)
     Dates: start: 20230104
  9. AMIKACIN [Concomitant]
     Active Substance: AMIKACIN
     Dosage: UNK
     Dates: start: 20230120, end: 20230121
  10. CALCIUM\CHOLECALCIFEROL [Concomitant]
     Active Substance: CALCIUM\CHOLECALCIFEROL
     Dosage: UNK
     Dates: start: 20230203
  11. COCODAMOL [Concomitant]
     Active Substance: ACETAMINOPHEN\CODEINE PHOSPHATE
     Dosage: UNK
     Dates: start: 20221229, end: 20230109
  12. COTRIMOXAZOLE [Concomitant]
     Active Substance: SULFAMETHOXAZOLE\TRIMETHOPRIM
     Dosage: UNK (ADDITIONAL INFORMATION: ONGOING)
     Dates: start: 20220831
  13. DEXAMETHASONE [Concomitant]
     Active Substance: DEXAMETHASONE
     Dosage: UNK
     Dates: start: 20230104, end: 20230107
  14. LANSOPRAZOLE [Concomitant]
     Active Substance: LANSOPRAZOLE
     Dosage: UNK (ADDITIONAL INFORMATION: ONGOING)
     Dates: start: 20220831
  15. METOCLOPRAMIDE [Concomitant]
     Active Substance: METOCLOPRAMIDE
     Dosage: UNK
     Dates: start: 20230104, end: 20230109
  16. MORPHINE [Concomitant]
     Active Substance: MORPHINE
     Dosage: UNK
     Dates: start: 20230121, end: 20230122
  17. NYSTATIN [Concomitant]
     Active Substance: NYSTATIN
     Dosage: UNK
     Dates: start: 20221210, end: 20230120
  18. ONDANSETRON [Concomitant]
     Active Substance: ONDANSETRON
     Dosage: UNK
     Dates: start: 20230104, end: 20230109
  19. ORAMORPH SR SUSTAINED RELEASE [Concomitant]
     Active Substance: MORPHINE SULFATE
     Dosage: UNK
     Dates: start: 20221229, end: 20230122
  20. OXYLAN [Concomitant]
     Dosage: ONGOING
     Dates: start: 20230123
  21. OXYCODONE HYDROCHLORIDE [Concomitant]
     Active Substance: OXYCODONE HYDROCHLORIDE
     Dosage: UNK
     Dates: start: 20230123, end: 20230123
  22. SODIUM CHLORIDE [Concomitant]
     Active Substance: SODIUM CHLORIDE
     Dosage: UNK
     Dates: start: 20230204, end: 20230204
  23. POTASSIUM CHLORIDE [Concomitant]
     Active Substance: POTASSIUM CHLORIDE
     Dosage: UNK
     Dates: start: 20230204, end: 20230204
  24. PREDNISOLONE [Concomitant]
     Active Substance: PREDNISOLONE
     Dosage: UNK (ADDITIONAL INFORMATION: ONGOING)
     Dates: start: 20221222, end: 20230103
  25. RASBURICASE [Concomitant]
     Active Substance: RASBURICASE
     Dosage: UNK
     Dates: start: 20230123, end: 20230124
  26. POTASSIUM BICARBONATE\POTASSIUM CHLORIDE [Concomitant]
     Active Substance: POTASSIUM BICARBONATE\POTASSIUM CHLORIDE
     Dosage: UNK
     Dates: start: 20230122, end: 20230124
  27. SOLIFENACIN [Concomitant]
     Active Substance: SOLIFENACIN
     Dosage: ONGOING
     Dates: start: 20230130
  28. VORICONAZOLE [Concomitant]
     Active Substance: VORICONAZOLE
     Dosage: ONGOING
     Dates: start: 20230122

REACTIONS (3)
  - Febrile neutropenia [Recovered/Resolved]
  - Pseudomonas infection [Recovered/Resolved]
  - Product use issue [Unknown]

NARRATIVE: CASE EVENT DATE: 20230109
